FAERS Safety Report 5263885-5 (Version None)
Quarter: 2007Q1

REPORT INFORMATION
  Report Type: 
  Country: None (occurrence: None)
  Receive Date: 20070313
  Receipt Date: 20070309
  Transmission Date: 20070707
  Serious: Yes (Other)
  Sender: FDA-Public Use
  Company Number: US-BRISTOL-MYERS SQUIBB COMPANY-13709092

PATIENT
  Sex: Female

DRUGS (1)
  1. COUMADIN [Suspect]

REACTIONS (5)
  - DRUG INEFFECTIVE [None]
  - HAEMATOMA [None]
  - PARALYSIS [None]
  - SENSORY DISTURBANCE [None]
  - THROMBOSIS [None]
